FAERS Safety Report 17169490 (Version 6)
Quarter: 2023Q1

REPORT INFORMATION
  Report Type: Report from Study
  Country: SG (occurrence: SG)
  Receive Date: 20191218
  Receipt Date: 20230127
  Transmission Date: 20230418
  Serious: Yes (Hospitalization)
  Sender: FDA-Public Use
  Company Number: NVSC2019SG067712

PATIENT
  Age: 58 Year
  Sex: Female
  Weight: 49.9 kg

DRUGS (17)
  1. CANAKINUMAB [Suspect]
     Active Substance: CANAKINUMAB
     Indication: Triple negative breast cancer
     Dosage: 600 MG
     Route: 058
     Dates: start: 20191202
  2. SPARTALIZUMAB [Suspect]
     Active Substance: SPARTALIZUMAB
     Indication: Triple negative breast cancer
     Dosage: 400 MG
     Route: 042
     Dates: start: 20191202
  3. IERAMILIMAB [Suspect]
     Active Substance: IERAMILIMAB
     Indication: Triple negative breast cancer
     Dosage: 600 MG
     Route: 042
     Dates: start: 20191202
  4. ATORVASTATIN [Concomitant]
     Active Substance: ATORVASTATIN
     Indication: Hyperlipidaemia
     Dosage: UNK
     Route: 065
     Dates: start: 2016
  5. METOCLOPRAMIDE HYDROCHLORIDE [Concomitant]
     Active Substance: METOCLOPRAMIDE HYDROCHLORIDE
     Indication: Prophylaxis of nausea and vomiting
     Dosage: UNK
     Route: 065
     Dates: start: 20191003, end: 20200311
  6. MAGNESIUM SULFATE [Concomitant]
     Active Substance: MAGNESIUM SULFATE
     Indication: Hypomagnesaemia
     Dosage: UNK
     Route: 042
     Dates: start: 20191129, end: 20191129
  7. MAGNESIUM SULFATE [Concomitant]
     Active Substance: MAGNESIUM SULFATE
     Dosage: UNK
     Route: 065
     Dates: start: 20191209, end: 20191209
  8. ACTRAPID [Concomitant]
     Active Substance: INSULIN HUMAN
     Indication: Diabetes mellitus
     Dosage: 5 UNITS
     Route: 065
     Dates: start: 20191209, end: 20191209
  9. DEXTROSE [Concomitant]
     Active Substance: DEXTROSE
     Indication: Prophylaxis
     Dosage: 40 ML
     Route: 065
     Dates: start: 20191209, end: 20191209
  10. ACETAMINOPHEN [Concomitant]
     Active Substance: ACETAMINOPHEN
     Indication: Pain prophylaxis
     Dosage: UNK
     Route: 065
     Dates: start: 20190906, end: 20200311
  11. ACETAMINOPHEN [Concomitant]
     Active Substance: ACETAMINOPHEN
     Indication: Hip fracture
  12. TRAMADOL [Concomitant]
     Active Substance: TRAMADOL
     Indication: Pain prophylaxis
     Dosage: UNK
     Route: 065
     Dates: start: 20191128, end: 20200311
  13. TRAMADOL [Concomitant]
     Active Substance: TRAMADOL
     Indication: Hip fracture
  14. INSULIN HUMAN [Concomitant]
     Active Substance: INSULIN HUMAN
     Indication: Diabetes mellitus
     Dosage: UNK
     Route: 065
     Dates: start: 2001
  15. CANDESARTAN CILEXETIL [Concomitant]
     Active Substance: CANDESARTAN CILEXETIL
     Indication: Hypertension
     Dosage: UNK
     Route: 065
     Dates: start: 20190906, end: 20200112
  16. METFORMIN HYDROCHLORIDE [Concomitant]
     Active Substance: METFORMIN HYDROCHLORIDE
     Indication: Diabetes mellitus
     Dosage: UNK
     Route: 065
     Dates: start: 2001, end: 20200318
  17. GLICLAZIDE [Concomitant]
     Active Substance: GLICLAZIDE
     Indication: Diabetes mellitus
     Dosage: UNK
     Route: 065
     Dates: start: 2001, end: 20200201

REACTIONS (1)
  - Hyperkalaemia [Recovered/Resolved]

NARRATIVE: CASE EVENT DATE: 20191209
